FAERS Safety Report 5158436-X (Version None)
Quarter: 2006Q4

REPORT INFORMATION
  Report Type: 
  Country: None (occurrence: None)
  Receive Date: 20061128
  Receipt Date: 20061012
  Transmission Date: 20070319
  Serious: Yes (Life-Threatening, Hospitalization)
  Sender: FDA-Public Use
  Company Number: PHBS2006JP16084

PATIENT
  Age: 67 Year
  Sex: Female
  Weight: 66 kg

DRUGS (10)
  1. GASTER D [Concomitant]
     Indication: ABDOMINAL PAIN UPPER
     Dosage: 20 MG/DAY
     Route: 048
     Dates: start: 20021028
  2. MARZULENE S [Concomitant]
     Indication: ABDOMINAL PAIN UPPER
     Dosage: 2.0 G/DAY
     Route: 048
     Dates: start: 20021028
  3. DEPAS [Concomitant]
     Indication: HYPERVENTILATION
     Dosage: 1.0 MG/DAY
     Route: 048
     Dates: start: 19930228
  4. ALFAROL [Concomitant]
     Indication: OSTEOPOROSIS
     Dosage: 1 UG/DAY
     Route: 048
     Dates: start: 20030704
  5. ASPARA-CA [Concomitant]
     Indication: OSTEOPOROSIS
     Dosage: 400 UG/DAY
     Route: 048
     Dates: start: 20040922
  6. UNASYN [Concomitant]
     Dosage: 1.5 G/DAY
     Dates: start: 20061012
  7. UNASYN [Concomitant]
     Dosage: 1.5 G, BID
     Dates: start: 20061013
  8. VOLTAREN [Suspect]
     Indication: OSTEOARTHRITIS
     Dosage: 25 MG, BID
     Route: 048
     Dates: start: 20061011
  9. MOBIC [Concomitant]
     Dosage: 10 MG/DAY
     Route: 048
     Dates: start: 20041115
  10. ATARAX [Concomitant]
     Indication: HYPERVENTILATION
     Dosage: 20 MG/DAY
     Route: 048
     Dates: start: 19930228

REACTIONS (26)
  - BLOOD CREATININE INCREASED [None]
  - BLOOD GLUCOSE INCREASED [None]
  - BLOOD LACTATE DEHYDROGENASE INCREASED [None]
  - BLOOD POTASSIUM DECREASED [None]
  - BLOOD PRESSURE DECREASED [None]
  - BLOOD UREA INCREASED [None]
  - C-REACTIVE PROTEIN INCREASED [None]
  - CHEST X-RAY ABNORMAL [None]
  - DEPRESSED LEVEL OF CONSCIOUSNESS [None]
  - DISCOMFORT [None]
  - DYSPNOEA [None]
  - HAEMATOCRIT INCREASED [None]
  - HAEMOGLOBIN INCREASED [None]
  - HYPERVENTILATION [None]
  - HYPOXIA [None]
  - NAUSEA [None]
  - PALLOR [None]
  - PCO2 DECREASED [None]
  - PLATELET COUNT INCREASED [None]
  - PO2 DECREASED [None]
  - PULMONARY OEDEMA [None]
  - RALES [None]
  - RED BLOOD CELL COUNT INCREASED [None]
  - SHOCK [None]
  - VOMITING [None]
  - WHITE BLOOD CELL COUNT INCREASED [None]
